FAERS Safety Report 7728584-6 (Version None)
Quarter: 2011Q3

REPORT INFORMATION
  Report Type: 
  Country: None (occurrence: None)
  Receive Date: 20110831
  Receipt Date: 20110831
  Transmission Date: 20111222
  Serious: Yes (Death)
  Sender: FDA-Public Use
  Company Number: None

PATIENT
  Sex: Male
  Weight: 79.2 kg

DRUGS (2)
  1. DECITABINE [Suspect]
     Indication: COLORECTAL CANCER
     Dosage: 45MG/M2 QOWEEK
     Dates: start: 20110414, end: 20110721
  2. PANITUMUMAB [Suspect]
     Dosage: 6MG/KG QOWEEK
     Dates: start: 20110414, end: 20110728

REACTIONS (4)
  - BLOOD BILIRUBIN INCREASED [None]
  - GENERAL PHYSICAL HEALTH DETERIORATION [None]
  - DISEASE PROGRESSION [None]
  - URINARY INCONTINENCE [None]
